FAERS Safety Report 19889121 (Version 1)
Quarter: 2021Q3

REPORT INFORMATION
  Report Type: Spontaneous
  Country: US (occurrence: US)
  Receive Date: 20210927
  Receipt Date: 20210927
  Transmission Date: 20211014
  Serious: Yes (Hospitalization)
  Sender: FDA-Public Use
  Company Number: None

PATIENT
  Age: 26 Year
  Sex: Female
  Weight: 60.7 kg

DRUGS (5)
  1. VENLAFAXINE (EFFEXOR?XR) [Concomitant]
  2. PROTONIX [Concomitant]
     Active Substance: PANTOPRAZOLE SODIUM
  3. HUMIRA [Suspect]
     Active Substance: ADALIMUMAB
  4. ONDANSETRON [Concomitant]
     Active Substance: ONDANSETRON
  5. ETONOGESTREL (IMPLANON SC) [Concomitant]

REACTIONS (2)
  - Cat scratch disease [None]
  - Headache [None]

NARRATIVE: CASE EVENT DATE: 20191016
